FAERS Safety Report 14505050 (Version 1)
Quarter: 2018Q1

REPORT INFORMATION
  Report Type: Spontaneous
  Country: US (occurrence: US)
  Receive Date: 20180207
  Receipt Date: 20180207
  Transmission Date: 20180509
  Serious: No
  Sender: FDA-Public Use
  Company Number: None

PATIENT
  Age: 37 Year
  Sex: Female
  Weight: 59.85 kg

DRUGS (5)
  1. WELLBUTRIN [Concomitant]
     Active Substance: BUPROPION HYDROCHLORIDE
  2. ATIVAN [Concomitant]
     Active Substance: LORAZEPAM
  3. BUPROPION HYDROCHLORIDE XL [Suspect]
     Active Substance: BUPROPION HYDROCHLORIDE
     Indication: DEPRESSION
     Dosage: ?          QUANTITY:90 TABLET(S);?
     Route: 048
  4. LAMICTAL [Concomitant]
     Active Substance: LAMOTRIGINE
  5. XANAX [Concomitant]
     Active Substance: ALPRAZOLAM

REACTIONS (8)
  - Withdrawal syndrome [None]
  - Hyperhidrosis [None]
  - Heart rate increased [None]
  - Product substitution issue [None]
  - Influenza like illness [None]
  - Anxiety [None]
  - Feeling jittery [None]
  - Paraesthesia [None]
